FAERS Safety Report 4735789-5 (Version None)
Quarter: 2005Q3

REPORT INFORMATION
  Report Type: 
  Country: None (occurrence: None)
  Receive Date: 20050721
  Receipt Date: 20050426
  Transmission Date: 20060218
  Serious: No
  Sender: FDA-Public Use
  Company Number: 2005SP000433

PATIENT
  Sex: Female

DRUGS (1)
  1. LUNESTA [Suspect]
     Dosage: 1X;ORAL
     Route: 048
     Dates: start: 20050425, end: 20050425

REACTIONS (1)
  - DYSGEUSIA [None]
